FAERS Safety Report 7759144-9 (Version None)
Quarter: 2011Q3

REPORT INFORMATION
  Report Type: 
  Country: None (occurrence: None)
  Receive Date: 20110915
  Receipt Date: 20110906
  Transmission Date: 20111222
  Serious: Yes (Hospitalization)
  Sender: FDA-Public Use
  Company Number: 2011001768

PATIENT
  Age: 64 Year
  Sex: Male

DRUGS (1)
  1. TARCEVA [Suspect]
     Indication: PRODUCT USED FOR UNKNOWN INDICATION
     Dosage: 100 MG, UID/QD, ORAL
     Route: 048
     Dates: start: 20110311

REACTIONS (5)
  - PERIORBITAL OEDEMA [None]
  - RASH [None]
  - ASTHENIA [None]
  - FACE OEDEMA [None]
  - HOSPITALISATION [None]
